FAERS Safety Report 11624507 (Version 1)
Quarter: 2015Q4

REPORT INFORMATION
  Report Type: Report from Study
  Country: IE (occurrence: IE)
  Receive Date: 20151013
  Receipt Date: 20151013
  Transmission Date: 20160304
  Serious: Yes (Other)
  Sender: FDA-Public Use
  Company Number: PHFR2015IE006515

PATIENT
  Sex: Male

DRUGS (1)
  1. GILENYA [Suspect]
     Active Substance: FINGOLIMOD HYDROCHLORIDE
     Indication: RELAPSING-REMITTING MULTIPLE SCLEROSIS
     Dosage: 0.5 MG, UNK
     Route: 048

REACTIONS (5)
  - Abasia [Unknown]
  - Back pain [Recovering/Resolving]
  - Lower respiratory tract infection [Recovering/Resolving]
  - Kidney infection [Recovering/Resolving]
  - Multiple sclerosis [Recovering/Resolving]
